FAERS Safety Report 25817070 (Version 1)
Quarter: 2025Q3

REPORT INFORMATION
  Report Type: Report from Study
  Country: EU (occurrence: EU)
  Receive Date: 20250918
  Receipt Date: 20250918
  Transmission Date: 20251021
  Serious: Yes (Hospitalization, Other)
  Sender: MYLAN
  Company Number: EU-BRISTOL-MYERS SQUIBB COMPANY-2025-120877

PATIENT
  Age: 67 Year
  Sex: Female

DRUGS (12)
  1. METHOTREXATE [Suspect]
     Active Substance: METHOTREXATE
     Indication: Product used for unknown indication
     Dosage: 15 MILLIGRAM, QW
     Dates: end: 202505
  2. METHOTREXATE [Suspect]
     Active Substance: METHOTREXATE
     Dosage: 15 MILLIGRAM, QW
     Route: 065
     Dates: end: 202505
  3. METHOTREXATE [Suspect]
     Active Substance: METHOTREXATE
     Dosage: 15 MILLIGRAM, QW
     Route: 065
     Dates: end: 202505
  4. METHOTREXATE [Suspect]
     Active Substance: METHOTREXATE
     Dosage: 15 MILLIGRAM, QW
     Dates: end: 202505
  5. ORENCIA [Suspect]
     Active Substance: ABATACEPT
     Indication: Rheumatic disorder
     Dosage: 125 MILLIGRAM, QW
     Dates: end: 20250425
  6. ORENCIA [Suspect]
     Active Substance: ABATACEPT
     Dosage: 125 MILLIGRAM, QW
     Route: 058
     Dates: end: 20250425
  7. ORENCIA [Suspect]
     Active Substance: ABATACEPT
     Dosage: 125 MILLIGRAM, QW
     Route: 058
     Dates: end: 20250425
  8. ORENCIA [Suspect]
     Active Substance: ABATACEPT
     Dosage: 125 MILLIGRAM, QW
     Dates: end: 20250425
  9. METHIMAZOLE [Suspect]
     Active Substance: METHIMAZOLE
     Indication: Product used for unknown indication
  10. METHIMAZOLE [Suspect]
     Active Substance: METHIMAZOLE
     Route: 065
  11. METHIMAZOLE [Suspect]
     Active Substance: METHIMAZOLE
     Route: 065
  12. METHIMAZOLE [Suspect]
     Active Substance: METHIMAZOLE

REACTIONS (4)
  - Bone marrow failure [Unknown]
  - Gastrooesophageal reflux disease [Unknown]
  - Neutropenia [Unknown]
  - Bicytopenia [Unknown]

NARRATIVE: CASE EVENT DATE: 20250101
